FAERS Safety Report 9051346 (Version 3)
Quarter: 2013Q3

REPORT INFORMATION
  Report Type: Spontaneous
  Country: US (occurrence: US)
  Receive Date: 20130206
  Receipt Date: 20130721
  Transmission Date: 20140515
  Serious: No
  Sender: FDA-Public Use
  Company Number: US-009507513-1302USA001884

PATIENT
  Age: 60 Year
  Sex: Male

DRUGS (5)
  1. PEGINTRON [Suspect]
     Indication: HEPATITIS C
     Dosage: 150 MICROGRAM, QW, REDIPEN
     Route: 058
     Dates: start: 20130102
  2. PEGINTRON [Suspect]
     Dosage: 150 MICROGRAM, QW, REDIPEN
     Route: 058
     Dates: start: 20130114
  3. RIBAPAK [Suspect]
     Indication: HEPATITIS C
     Dosage: UNK
  4. INCIVEK [Suspect]
     Indication: HEPATITIS C
  5. ACCUPRIL [Concomitant]
     Dosage: UNK

REACTIONS (14)
  - Proctalgia [Unknown]
  - Anal pruritus [Unknown]
  - Fatigue [Unknown]
  - Chills [Unknown]
  - Chest pain [Unknown]
  - Febrile infection [Unknown]
  - Chromaturia [Unknown]
  - Fatigue [Unknown]
  - Influenza like illness [Unknown]
  - Weight decreased [Unknown]
  - Alopecia [Unknown]
  - Dyspnoea [Unknown]
  - Rash [Unknown]
  - Pruritus [Unknown]
